FAERS Safety Report 9225629 (Version 2)
Quarter: 2013Q2

REPORT INFORMATION
  Report Type: Spontaneous
  Country: IT (occurrence: IT)
  Receive Date: 20130411
  Receipt Date: 20130422
  Transmission Date: 20140414
  Serious: Yes (Hospitalization)
  Sender: FDA-Public Use
  Company Number: IT-009507513-1304ITA003943

PATIENT
  Sex: Female

DRUGS (3)
  1. JANUVIA [Suspect]
     Dosage: 100 MG, QD
     Route: 048
  2. JANUVIA [Suspect]
     Dosage: 100 MG, QD
     Route: 048
     Dates: start: 201211
  3. METFORMIN [Concomitant]

REACTIONS (4)
  - Pancreatitis [Unknown]
  - Amylase increased [Not Recovered/Not Resolved]
  - Amylase increased [Unknown]
  - Intraductal papillary mucinous neoplasm [Unknown]
